FAERS Safety Report 8984817 (Version 1)
Quarter: 2012Q4

REPORT INFORMATION
  Report Type: 
  Country: AR (occurrence: AR)
  Receive Date: 20121226
  Receipt Date: 20121226
  Transmission Date: 20130627
  Serious: Yes (Hospitalization, Other)
  Sender: FDA-Public Use
  Company Number: PHHY2012AR119299

PATIENT
  Sex: Male

DRUGS (1)
  1. DIOVAN [Suspect]
     Indication: BLOOD PRESSURE ABNORMAL
     Dosage: 160 mg, daily
     Route: 048
     Dates: start: 2010

REACTIONS (3)
  - Pneumonia [Recovering/Resolving]
  - Maculopathy [Recovered/Resolved]
  - Somnolence [Unknown]
